FAERS Safety Report 4872767-X (Version None)
Quarter: 2006Q1

REPORT INFORMATION
  Report Type: 
  Country: None (occurrence: None)
  Receive Date: 20060103
  Receipt Date: 20051223
  Transmission Date: 20060701
  Serious: Yes (Other)
  Sender: FDA-Public Use
  Company Number: 200510911BNE

PATIENT
  Age: 71 Year
  Sex: Male

DRUGS (3)
  1. ASPIRIN [Suspect]
     Indication: TRANSIENT ISCHAEMIC ATTACK
  2. DIPYRIDAMOLE [Suspect]
     Indication: TRANSIENT ISCHAEMIC ATTACK
  3. CLOPIDOGREL [Suspect]
     Indication: TRANSIENT ISCHAEMIC ATTACK

REACTIONS (4)
  - CONDITION AGGRAVATED [None]
  - DRUG INEFFECTIVE [None]
  - HEMIPARESIS [None]
  - TRANSIENT ISCHAEMIC ATTACK [None]
